FAERS Safety Report 10706460 (Version 1)
Quarter: 2015Q1

REPORT INFORMATION
  Report Type: Spontaneous
  Country: US (occurrence: None)
  Receive Date: 20150109
  Receipt Date: 20150109
  Transmission Date: 20150721
  Serious: Yes (Disabling)
  Sender: FDA-Public Use
  Company Number: None

PATIENT
  Age: 62 Year
  Sex: Female
  Weight: 68.04 kg

DRUGS (1)
  1. BUPROPION XL [Suspect]
     Active Substance: BUPROPION
     Indication: DYSTHYMIC DISORDER
     Route: 048
     Dates: start: 20141001, end: 20141212

REACTIONS (3)
  - Depression [None]
  - Acne cystic [None]
  - Product substitution issue [None]

NARRATIVE: CASE EVENT DATE: 20141213
